FAERS Safety Report 18245654 (Version 3)
Quarter: 2021Q1

REPORT INFORMATION
  Report Type: Report from Study
  Country: None (occurrence: US)
  Receive Date: 20200909
  Receipt Date: 20210225
  Transmission Date: 20210419
  Serious: Yes (Hospitalization, Disabling, Other)
  Sender: FDA-Public Use
  Company Number: US-ABBVIE-20K-163-3361580-00

PATIENT
  Sex: Female
  Weight: 53.12 kg

DRUGS (2)
  1. HUMIRA [Suspect]
     Active Substance: ADALIMUMAB
     Indication: RHEUMATOID ARTHRITIS
     Route: 058
     Dates: start: 2007, end: 2010
  2. HUMIRA [Suspect]
     Active Substance: ADALIMUMAB
     Route: 058
     Dates: start: 2013

REACTIONS (25)
  - Upper limb fracture [Unknown]
  - Mobility decreased [Unknown]
  - Fall [Recovered/Resolved]
  - Fall [Recovered/Resolved]
  - Upper limb fracture [Unknown]
  - Therapeutic product effect decreased [Recovering/Resolving]
  - Osteoarthritis [Recovering/Resolving]
  - Upper limb fracture [Recovered/Resolved]
  - Pelvic pain [Unknown]
  - Procedural pain [Unknown]
  - Renal disorder [Not Recovered/Not Resolved]
  - Limb injury [Unknown]
  - Pelvic fracture [Recovered/Resolved]
  - Gait disturbance [Unknown]
  - Memory impairment [Not Recovered/Not Resolved]
  - Impaired healing [Not Recovered/Not Resolved]
  - Scoliosis [Not Recovered/Not Resolved]
  - Feeling abnormal [Unknown]
  - Rotator cuff syndrome [Recovering/Resolving]
  - Back disorder [Not Recovered/Not Resolved]
  - Knee arthroplasty [Unknown]
  - Bacterial infection [Recovered/Resolved]
  - Fall [Unknown]
  - Drug ineffective [Unknown]
  - Pain [Recovering/Resolving]

NARRATIVE: CASE EVENT DATE: 2014
